FAERS Safety Report 20893795 (Version 1)
Quarter: 2022Q2

REPORT INFORMATION
  Report Type: Spontaneous
  Country: US (occurrence: US)
  Receive Date: 20220531
  Receipt Date: 20220531
  Transmission Date: 20220721
  Serious: Yes (Other)
  Sender: FDA-Public Use
  Company Number: US-CIPLA LTD.-2022US03414

PATIENT

DRUGS (5)
  1. PREGABALIN [Suspect]
     Active Substance: PREGABALIN
     Indication: Fibromyalgia
     Dosage: 300 MILLIGRAM, BID (ONE CAPSULE BY MONTH TWICE DAILY)
     Route: 048
     Dates: start: 20220518
  2. PREGABALIN [Suspect]
     Active Substance: PREGABALIN
     Indication: Arthritis
  3. PREGABALIN [Suspect]
     Active Substance: PREGABALIN
     Indication: Pain
  4. PREGABALIN [Suspect]
     Active Substance: PREGABALIN
     Indication: Back disorder
  5. OXYGEN [Concomitant]
     Active Substance: OXYGEN
     Indication: Product used for unknown indication
     Dosage: UNK
     Route: 065

REACTIONS (5)
  - Unresponsive to stimuli [Unknown]
  - Lethargy [Unknown]
  - Product substitution issue [Unknown]
  - Dyspnoea [Unknown]
  - Somnolence [Unknown]

NARRATIVE: CASE EVENT DATE: 20220501
